FAERS Safety Report 14254404 (Version 1)
Quarter: 2017Q4

REPORT INFORMATION
  Report Type: Spontaneous
  Country: SE (occurrence: SE)
  Receive Date: 20171206
  Receipt Date: 20171206
  Transmission Date: 20180321
  Serious: Yes (Hospitalization)
  Sender: FDA-Public Use
  Company Number: SE-ASTRAZENECA-2017SF23564

PATIENT
  Age: 85 Year
  Sex: Female

DRUGS (29)
  1. BISOPROLOL [Concomitant]
     Active Substance: BISOPROLOL
  2. LANTUS [Concomitant]
     Active Substance: INSULIN GLARGINE
  3. IMDUR [Concomitant]
     Active Substance: ISOSORBIDE MONONITRATE
  4. FUROSEMIDE. [Concomitant]
     Active Substance: FUROSEMIDE
  5. KALCIPOS-D FORTE [Concomitant]
     Active Substance: CALCIUM CARBONATE\CHOLECALCIFEROL
  6. IMUREL [Concomitant]
     Active Substance: AZATHIOPRINE SODIUM
  7. ONDANSETRON [Concomitant]
     Active Substance: ONDANSETRON
  8. CANDESARTAN. [Suspect]
     Active Substance: CANDESARTAN
     Indication: CARDIAC FAILURE
     Route: 048
     Dates: start: 20171102, end: 20171106
  9. FOLACIN [Concomitant]
     Active Substance: FOLIC ACID
  10. NITROLINGUAL [Concomitant]
     Active Substance: NITROGLYCERIN
  11. PROLIA [Concomitant]
     Active Substance: DENOSUMAB
  12. ELIQUIS [Concomitant]
     Active Substance: APIXABAN
  13. IMPUGAN [Concomitant]
     Active Substance: FUROSEMIDE
  14. OMEPRAZOL PENSA [Concomitant]
     Active Substance: OMEPRAZOLE MAGNESIUM
  15. MADOPARK QUICK MITE [Concomitant]
     Active Substance: BENSERAZIDE HYDROCHLORIDE\LEVODOPA
  16. NOVORAPID [Concomitant]
     Active Substance: INSULIN ASPART
  17. LACTULOSE. [Concomitant]
     Active Substance: LACTULOSE
  18. PREDNISOLON [Concomitant]
     Active Substance: PREDNISOLONE
  19. DUROFERON [Concomitant]
     Active Substance: FERROUS SULFATE
  20. SOBRIL [Concomitant]
     Active Substance: OXAZEPAM
  21. CILAXORAL [Concomitant]
     Active Substance: SODIUM PICOSULFATE
  22. MIRTAZAPINE. [Concomitant]
     Active Substance: MIRTAZAPINE
  23. LEVAXIN [Concomitant]
     Active Substance: LEVOTHYROXINE SODIUM
  24. SPIOLTO RESPIMAT [Concomitant]
     Active Substance: OLODATEROL HYDROCHLORIDE\TIOTROPIUM BROMIDE MONOHYDRATE
  25. AZOPT [Concomitant]
     Active Substance: BRINZOLAMIDE
  26. IMOVANE [Concomitant]
     Active Substance: ZOPICLONE
  27. BETOLVIDON [Concomitant]
     Active Substance: CYANOCOBALAMIN
  28. OXYNORM [Concomitant]
     Active Substance: OXYCODONE HYDROCHLORIDE
  29. TARGINIQ ER [Concomitant]
     Active Substance: NALOXONE HYDROCHLORIDE\OXYCODONE HYDROCHLORIDE

REACTIONS (2)
  - Angioedema [Recovered/Resolved]
  - Product substitution issue [Recovered/Resolved]

NARRATIVE: CASE EVENT DATE: 20171106
